FAERS Safety Report 23674380 (Version 1)
Quarter: 2024Q1

REPORT INFORMATION
  Report Type: Spontaneous
  Country: US (occurrence: US)
  Receive Date: 20240326
  Receipt Date: 20240326
  Transmission Date: 20240409
  Serious: No
  Sender: FDA-Public Use
  Company Number: US-ALKERMES INC.-ALK-2024-000619

PATIENT
  Sex: Female

DRUGS (3)
  1. VIVITROL [Suspect]
     Active Substance: NALTREXONE
     Indication: Drug use disorder
     Dosage: 380 MILLIGRAM, Q28D
     Route: 030
  2. VIVITROL [Suspect]
     Active Substance: NALTREXONE
     Indication: Alcohol use disorder
  3. FENTANYL [Suspect]
     Active Substance: FENTANYL\FENTANYL CITRATE
     Indication: Anaesthesia
     Dosage: .89 MILLIGRAM, ONE TIME DOSE
     Route: 008

REACTIONS (5)
  - Contraindicated product administered [Recovered/Resolved]
  - Heart rate irregular [Unknown]
  - Peripheral swelling [Unknown]
  - Diarrhoea [Unknown]
  - Maternal exposure during pregnancy [Recovered/Resolved]
